FAERS Safety Report 6147197-3 (Version None)
Quarter: 2009Q2

REPORT INFORMATION
  Report Type: 
  Country: None (occurrence: None)
  Receive Date: 20090407
  Receipt Date: 20081023
  Transmission Date: 20091009
  Serious: No
  Sender: FDA-Public Use
  Company Number: US-TYCO HEALTHCARE/MALLINCKRODT-T200801871

PATIENT

DRUGS (1)
  1. METHADOSE [Suspect]

REACTIONS (1)
  - DRUG DIVERSION [None]
